FAERS Safety Report 12631933 (Version 4)
Quarter: 2016Q4

REPORT INFORMATION
  Report Type: Spontaneous
  Country: US (occurrence: US)
  Receive Date: 20160808
  Receipt Date: 20161012
  Transmission Date: 20170207
  Serious: No
  Sender: FDA-Public Use
  Company Number: US-BEH-2016061461

PATIENT
  Age: 58 Year
  Sex: Female
  Weight: 68.4 kg

DRUGS (17)
  1. SYMBICORT [Concomitant]
     Active Substance: BUDESONIDE\FORMOTEROL FUMARATE DIHYDRATE
  2. ALBUTEROL SULFATE. [Concomitant]
     Active Substance: ALBUTEROL SULFATE
  3. ESTRADIOL. [Concomitant]
     Active Substance: ESTRADIOL
  4. GABAPENTIN. [Concomitant]
     Active Substance: GABAPENTIN
  5. TRICOR [Concomitant]
     Active Substance: FENOFIBRATE
  6. HIZENTRA [Suspect]
     Active Substance: HUMAN IMMUNOGLOBULIN G
     Indication: SELECTIVE IGG SUBCLASS DEFICIENCY
     Dosage: 10 G, BIW
     Route: 058
  7. EPIPEN [Concomitant]
     Active Substance: EPINEPHRINE
  8. OMEPRAZOLE. [Concomitant]
     Active Substance: OMEPRAZOLE
  9. FOSAMAX [Concomitant]
     Active Substance: ALENDRONATE SODIUM
  10. AMITRIPTYLINE [Concomitant]
     Active Substance: AMITRIPTYLINE
  11. ACETAMINOPHEN. [Concomitant]
     Active Substance: ACETAMINOPHEN
  12. DIPHENHYDRAMINE. [Concomitant]
     Active Substance: DIPHENHYDRAMINE
  13. VICODIN [Concomitant]
     Active Substance: ACETAMINOPHEN\HYDROCODONE BITARTRATE
  14. POLYETHYLENE GLYCOL [Concomitant]
     Active Substance: POLYETHYLENE GLYCOLS
  15. LIDOCAINE. [Concomitant]
     Active Substance: LIDOCAINE
  16. CYCLOBENZAPRINE [Concomitant]
     Active Substance: CYCLOBENZAPRINE
  17. NORCO [Concomitant]
     Active Substance: ACETAMINOPHEN\HYDROCODONE BITARTRATE

REACTIONS (1)
  - Product use issue [Recovered/Resolved]

NARRATIVE: CASE EVENT DATE: 20160523
